FAERS Safety Report 14141807 (Version 3)
Quarter: 2017Q4

REPORT INFORMATION
  Report Type: Spontaneous
  Country: DE (occurrence: DE)
  Receive Date: 20171030
  Receipt Date: 20171219
  Transmission Date: 20180321
  Serious: Yes (Other)
  Sender: FDA-Public Use
  Company Number: DE-PFIZER INC-2017462024

PATIENT
  Age: 39 Year
  Sex: Female
  Weight: 65 kg

DRUGS (2)
  1. TAVOR EXPIDET [Suspect]
     Active Substance: LORAZEPAM
     Indication: ANXIETY
     Dosage: 0.5 MG, 2X/DAY
     Route: 048
     Dates: start: 20170930, end: 20170930
  2. TAVOR EXPIDET [Suspect]
     Active Substance: LORAZEPAM
     Indication: PANIC DISORDER

REACTIONS (7)
  - Illusion [Unknown]
  - Photophobia [Unknown]
  - Loss of consciousness [Unknown]
  - Medication error [Unknown]
  - Disturbance in attention [Unknown]
  - Visual impairment [Recovered/Resolved]
  - Memory impairment [Unknown]

NARRATIVE: CASE EVENT DATE: 20170930
